FAERS Safety Report 6667412-7 (Version None)
Quarter: 2010Q2

REPORT INFORMATION
  Report Type: 
  Country: None (occurrence: None)
  Receive Date: 20100405
  Receipt Date: 20100325
  Transmission Date: 20101027
  Serious: Yes (Hospitalization)
  Sender: FDA-Public Use
  Company Number: ES-BAYER-201020262GPV

PATIENT
  Age: 69 Year
  Sex: Male

DRUGS (6)
  1. ASPIRIN [Suspect]
     Indication: PROPHYLAXIS
     Route: 048
     Dates: start: 20060201
  2. DICLOFENAC [Interacting]
     Indication: PAIN
     Route: 048
     Dates: start: 20080701, end: 20091112
  3. FUROSEMIDA [Interacting]
     Indication: DRUG USE FOR UNKNOWN INDICATION
     Route: 048
     Dates: start: 20060201
  4. METFORMIN HCL [Concomitant]
     Indication: DIABETES MELLITUS
     Route: 048
  5. ALOPURINOL [Concomitant]
     Indication: GOUT
     Route: 048
  6. DINISOR RETARD [Concomitant]
     Route: 048
     Dates: start: 20060401

REACTIONS (1)
  - RENAL FAILURE [None]
